FAERS Safety Report 18715286 (Version 2)
Quarter: 2021Q1

REPORT INFORMATION
  Report Type: Report from Study
  Country: FR (occurrence: FR)
  Receive Date: 20210108
  Receipt Date: 20210121
  Transmission Date: 20210419
  Serious: Yes (Other)
  Sender: FDA-Public Use
  Company Number: FR-ASTRAZENECA-2020SF65191

PATIENT
  Age: 22003 Day
  Sex: Male
  Weight: 109 kg

DRUGS (8)
  1. IRBESARTAN. [Concomitant]
     Active Substance: IRBESARTAN
     Dosage: 75 MG IN THE EVENING
  2. TAMSULOSINE SR [Concomitant]
     Dosage: 0.4 IN THE EVENING
  3. METFORMIN [Concomitant]
     Active Substance: METFORMIN HYDROCHLORIDE
     Dosage: 850 MG IN THE EVENING
  4. PARACETAMOL [Concomitant]
     Active Substance: ACETAMINOPHEN
     Dosage: 1 TO 4G PER DAY
  5. ACALABRUTINIB. [Suspect]
     Active Substance: ACALABRUTINIB
     Indication: CHRONIC LYMPHOCYTIC LEUKAEMIA
     Route: 048
     Dates: start: 20201015
  6. PANTOPRAZOLE [Concomitant]
     Active Substance: PANTOPRAZOLE
     Dosage: 20 MG IN THE EVENING
  7. GAVISCON [Concomitant]
     Active Substance: ALUMINUM HYDROXIDE\MAGNESIUM CARBONATE
     Dosage: 1 TO 4G PER DAY
  8. RANITIDINE. [Concomitant]
     Active Substance: RANITIDINE
     Dosage: 150 TWO IN THE EVENING

REACTIONS (4)
  - Lymphocyte count increased [Recovering/Resolving]
  - Lymphadenopathy [Recovered/Resolved]
  - White blood cell count abnormal [Recovering/Resolving]
  - Ecchymosis [Recovering/Resolving]

NARRATIVE: CASE EVENT DATE: 20201029
